FAERS Safety Report 14319450 (Version 1)
Quarter: 2017Q4

REPORT INFORMATION
  Report Type: Spontaneous
  Country: IR (occurrence: IR)
  Receive Date: 20171222
  Receipt Date: 20171222
  Transmission Date: 20180321
  Serious: Yes (Hospitalization, Other)
  Sender: FDA-Public Use
  Company Number: IR-MYLANLABS-2017M1080574

PATIENT
  Age: 6 Decade
  Sex: Female

DRUGS (5)
  1. INTERFERON BETA-1B [Suspect]
     Active Substance: INTERFERON BETA-1B
     Indication: PROGRESSIVE MULTIPLE SCLEROSIS
     Dosage: UNK
     Route: 065
  2. MITOXANTRONE [Suspect]
     Active Substance: MITOXANTRONE HYDROCHLORIDE
     Indication: PROGRESSIVE MULTIPLE SCLEROSIS
     Dosage: 4 INJECTIONS OF MITOXANTRONE
     Route: 065
  3. GABAPENTIN. [Concomitant]
     Active Substance: GABAPENTIN
     Indication: PROGRESSIVE MULTIPLE SCLEROSIS
     Dosage: UNK
     Route: 065
  4. NEUROAID [Concomitant]
     Active Substance: CYANOCOBALAMIN\PYRIDOXINE\THIAMINE
     Indication: PROGRESSIVE MULTIPLE SCLEROSIS
     Dosage: UNK
     Route: 065
  5. LEVOTHYROXINE. [Concomitant]
     Active Substance: LEVOTHYROXINE
     Indication: AUTOIMMUNE HYPOTHYROIDISM
     Dosage: LEVOTHYROXINE-SODIUM DAILY
     Route: 065

REACTIONS (1)
  - Invasive papillary breast carcinoma [Unknown]
